FAERS Safety Report 7432433-3 (Version None)
Quarter: 2011Q2

REPORT INFORMATION
  Report Type: 
  Country: None (occurrence: None)
  Receive Date: 20110422
  Receipt Date: 20110418
  Transmission Date: 20111010
  Serious: Yes (Death, Hospitalization)
  Sender: FDA-Public Use
  Company Number: BR-ASTRAZENECA-2011SE22131

PATIENT
  Age: 882 Month
  Sex: Male
  Weight: 80 kg

DRUGS (16)
  1. GLIMEPIRIDE [Concomitant]
     Indication: DIABETES MELLITUS
     Route: 048
     Dates: end: 20101004
  2. APROVEL [Concomitant]
     Route: 048
     Dates: start: 20101011
  3. PLAVIX [Concomitant]
     Route: 048
     Dates: start: 20101011
  4. METFORMIN [Concomitant]
     Route: 048
     Dates: start: 20101011
  5. GALVUS [Concomitant]
     Route: 048
     Dates: start: 20101011
  6. LEUKERAN [Concomitant]
     Indication: CHRONIC LYMPHOCYTIC LEUKAEMIA
     Dosage: 3-4 TABLETS/ 5 DAYS MONTHLY
     Route: 048
     Dates: start: 20101011
  7. APROVEL [Concomitant]
     Route: 048
     Dates: end: 20101004
  8. ASPIRIN [Concomitant]
     Indication: THROMBOSIS PROPHYLAXIS
     Route: 048
     Dates: start: 19950101, end: 20101004
  9. GLIMEPIRIDE [Concomitant]
     Route: 048
     Dates: start: 20101011
  10. CRESTOR [Suspect]
     Indication: HYPERCHOLESTEROLAEMIA
     Route: 048
     Dates: start: 20090501, end: 20101004
  11. CRESTOR [Suspect]
     Route: 048
     Dates: start: 20101011
  12. GALVUS [Concomitant]
     Indication: DIABETES MELLITUS
     Route: 048
     Dates: end: 20101004
  13. ASPIRIN [Concomitant]
     Route: 048
     Dates: start: 20101011
  14. METFORMIN [Concomitant]
     Indication: DIABETES MELLITUS
     Route: 048
     Dates: end: 20101004
  15. UNKNOWN [Concomitant]
     Indication: CHRONIC LYMPHOCYTIC LEUKAEMIA
     Route: 048
     Dates: start: 20060101, end: 20101004
  16. PLAVIX [Concomitant]
     Indication: THROMBOSIS PROPHYLAXIS
     Route: 048
     Dates: end: 20101004

REACTIONS (6)
  - FEBRILE NEUTROPENIA [None]
  - DYSPNOEA [None]
  - MULTI-ORGAN FAILURE [None]
  - FATIGUE [None]
  - LYMPHADENOPATHY [None]
  - SEPTIC SHOCK [None]
